FAERS Safety Report 5256099-6 (Version None)
Quarter: 2007Q1

REPORT INFORMATION
  Report Type: 
  Country: None (occurrence: None)
  Receive Date: 20070306
  Receipt Date: 20070223
  Transmission Date: 20070707
  Serious: Yes (Other)
  Sender: FDA-Public Use
  Company Number: JP-BAYER-200710101BYL

PATIENT
  Age: 64 Year
  Sex: Female
  Weight: 67 kg

DRUGS (8)
  1. CIPROFLOXACIN [Suspect]
     Indication: ENTERITIS INFECTIOUS
     Dosage: TOTAL DAILY DOSE: 400 MG  UNIT DOSE: 200 MG
     Route: 048
     Dates: start: 20070129, end: 20070202
  2. ADALAT [Concomitant]
     Indication: HYPERTENSION
     Dosage: TOTAL DAILY DOSE: 20 MG  UNIT DOSE: 20 MG
     Route: 048
     Dates: start: 20060928
  3. OLMETEC [Concomitant]
     Indication: HYPERTENSION
     Dosage: TOTAL DAILY DOSE: 20 MG  UNIT DOSE: 20 MG
     Route: 048
     Dates: start: 20061025
  4. ASPIRIN [Concomitant]
     Indication: CEREBRAL INFARCTION
     Dosage: TOTAL DAILY DOSE: 100 MG  UNIT DOSE: 100 MG
     Route: 048
     Dates: start: 20070129
  5. APONOL [Concomitant]
     Indication: CEREBRAL INFARCTION
     Dosage: TOTAL DAILY DOSE: 60 MG  UNIT DOSE: 20 MG
     Route: 048
     Dates: start: 20070129
  6. TANNALBIN [Concomitant]
     Indication: ENTERITIS INFECTIOUS
     Route: 048
     Dates: start: 20070129, end: 20070130
  7. PL [Concomitant]
     Indication: PHARYNGITIS
     Route: 048
     Dates: start: 20070130, end: 20070204
  8. LIPITOR [Concomitant]
     Indication: HYPERCHOLESTEROLAEMIA
     Dosage: TOTAL DAILY DOSE: 20 MG  UNIT DOSE: 10 MG
     Route: 048
     Dates: start: 20060928, end: 20070112

REACTIONS (3)
  - HAEMATURIA [None]
  - MYALGIA [None]
  - RHABDOMYOLYSIS [None]
